FAERS Safety Report 15802281 (Version 1)
Quarter: 2019Q1

REPORT INFORMATION
  Report Type: Spontaneous
  Country: US (occurrence: US)
  Receive Date: 20190104
  Receipt Date: 20190104
  Transmission Date: 20190417
  Serious: No
  Sender: FDA-Public Use
  Company Number: None

PATIENT

DRUGS (2)
  1. DEXTROSE, SODIUM CHLORIDE, AND POTASSIUM CHLORIDE [Suspect]
     Active Substance: DEXTROSE\POTASSIUM CHLORIDE\SODIUM CHLORIDE
  2. SODIUM CHLORIDE 0.9% SOLUTION [Suspect]
     Active Substance: SODIUM CHLORIDE

REACTIONS (3)
  - Product dispensing error [None]
  - Transcription medication error [None]
  - Intercepted product dispensing error [None]
